FAERS Safety Report 7971603-2 (Version None)
Quarter: 2011Q4

REPORT INFORMATION
  Report Type: 
  Country: None (occurrence: None)
  Receive Date: 20111212
  Receipt Date: 20111209
  Transmission Date: 20120403
  Serious: Yes (Other)
  Sender: FDA-Public Use
  Company Number: US-PFIZER INC-2011301140

PATIENT
  Sex: Female

DRUGS (1)
  1. LYRICA [Suspect]
     Dosage: UNK
     Dates: start: 20110101

REACTIONS (6)
  - WITHDRAWAL SYNDROME [None]
  - ANGER [None]
  - HEPATIC FUNCTION ABNORMAL [None]
  - AUTOIMMUNE DISORDER [None]
  - HOSTILITY [None]
  - WEIGHT INCREASED [None]
